FAERS Safety Report 5155677-2 (Version None)
Quarter: 2006Q4

REPORT INFORMATION
  Report Type: 
  Country: None (occurrence: None)
  Receive Date: 20061121
  Receipt Date: 20061109
  Transmission Date: 20070319
  Serious: Yes (Death, Hospitalization)
  Sender: FDA-Public Use
  Company Number: AE-MERCK-0611USA05175

PATIENT

DRUGS (3)
  1. CANCIDAS [Suspect]
     Indication: SINUSITIS FUNGAL
     Route: 042
  2. CANCIDAS [Suspect]
     Route: 042
  3. ANTINEOPLASTIC (UNSPECIFIED) [Concomitant]
     Indication: ACUTE MYELOID LEUKAEMIA
     Route: 065

REACTIONS (2)
  - DRUG INEFFECTIVE [None]
  - SINUSITIS FUNGAL [None]
